FAERS Safety Report 22176948 (Version 1)
Quarter: 2023Q2

REPORT INFORMATION
  Report Type: Spontaneous
  Country: US (occurrence: US)
  Receive Date: 20230405
  Receipt Date: 20230405
  Transmission Date: 20230721
  Serious: No
  Sender: FDA-Public Use
  Company Number: US-002147023-NVSC2023US078708

PATIENT
  Sex: Female

DRUGS (1)
  1. VOTRIENT [Suspect]
     Active Substance: PAZOPANIB HYDROCHLORIDE
     Indication: Endometrial neoplasm
     Dosage: 200 MG, QD
     Route: 048

REACTIONS (2)
  - Diarrhoea [Unknown]
  - Abnormal faeces [Unknown]
